FAERS Safety Report 6607112-2 (Version None)
Quarter: 2010Q1

REPORT INFORMATION
  Report Type: 
  Country: None (occurrence: None)
  Receive Date: 20100219
  Receipt Date: 20100216
  Transmission Date: 20100710
  Serious: Yes (Death)
  Sender: FDA-Public Use
  Company Number: ALL1-2010-00819

PATIENT
  Age: 69 Year
  Sex: Female

DRUGS (1)
  1. FOSRENOL [Suspect]
     Indication: HYPERPHOSPHATAEMIA

REACTIONS (2)
  - MYOCARDIAL INFARCTION [None]
  - PROCEDURAL COMPLICATION [None]
